FAERS Safety Report 12568896 (Version 4)
Quarter: 2016Q3

REPORT INFORMATION
  Report Type: Report from Study
  Country: FR (occurrence: FR)
  Receive Date: 20160719
  Receipt Date: 20160808
  Transmission Date: 20161109
  Serious: Yes (Hospitalization)
  Sender: FDA-Public Use
  Company Number: FR-ROCHE-1795218

PATIENT
  Age: 24 Year
  Sex: Female
  Weight: 49 kg

DRUGS (5)
  1. ACTISKENAN [Concomitant]
     Active Substance: MORPHINE SULFATE
     Route: 065
     Dates: start: 20160613
  2. RO 7009789 (CD40 AGONIST) [Suspect]
     Active Substance: INVESTIGATIONAL PRODUCT
     Indication: NEOPLASM
     Dosage: ON 02/MAY/2016, THE PATIENT RECEIVED THE MOST RECENT DOSE OF RO 7009789 (CD40 AGONIST) PRIOR TO LEFT
     Route: 058
     Dates: start: 20160502, end: 20160502
  3. SMECTA [Concomitant]
     Active Substance: MONTMORILLONITE
     Route: 065
     Dates: start: 20160706
  4. SKENAN [Concomitant]
     Active Substance: MORPHINE SULFATE
     Route: 065
     Dates: start: 20160613
  5. ATEZOLIZUMAB [Suspect]
     Active Substance: ATEZOLIZUMAB
     Indication: NEOPLASM
     Dosage: ON 13/JUN/2016, THE PATIENT RECEIVED THE MOST RECENT DOSE OF ATEZOLIZUMAB. ON 13/JUL/2016, THERAPY W
     Route: 042
     Dates: start: 20160523, end: 20160713

REACTIONS (1)
  - Left ventricular dysfunction [Recovered/Resolved]

NARRATIVE: CASE EVENT DATE: 20160711
